FAERS Safety Report 4860279-9 (Version None)
Quarter: 2005Q4

REPORT INFORMATION
  Report Type: 
  Country: None (occurrence: None)
  Receive Date: 20051219
  Receipt Date: 20051208
  Transmission Date: 20060501
  Serious: Yes (Hospitalization)
  Sender: FDA-Public Use
  Company Number: US-JNJFOC-20051202426

PATIENT
  Sex: Male

DRUGS (21)
  1. INFLIXIMAB [Suspect]
     Indication: RHEUMATOID ARTHRITIS
     Route: 042
  2. FOLIC ACID [Concomitant]
  3. RANITIDINE [Concomitant]
  4. NEXIUM [Concomitant]
  5. AMITRIPTYLINE [Concomitant]
  6. DARVOCET [Concomitant]
  7. DARVOCET [Concomitant]
  8. TYLENOL [Concomitant]
  9. MULTI-VITAMIN [Concomitant]
  10. MULTI-VITAMIN [Concomitant]
  11. MULTI-VITAMIN [Concomitant]
  12. MULTI-VITAMIN [Concomitant]
  13. MULTI-VITAMIN [Concomitant]
  14. MULTI-VITAMIN [Concomitant]
  15. MULTI-VITAMIN [Concomitant]
  16. MULTI-VITAMIN [Concomitant]
  17. ALLEGRA [Concomitant]
  18. IRON SUPPLEMENT [Concomitant]
  19. METOPROLOL [Concomitant]
  20. PREDNISONE TAB [Concomitant]
  21. REQUIP [Concomitant]

REACTIONS (9)
  - AORTIC VALVE CALCIFICATION [None]
  - AORTIC VALVE INCOMPETENCE [None]
  - BONE MARROW FAILURE [None]
  - EROSIVE DUODENITIS [None]
  - EROSIVE OESOPHAGITIS [None]
  - GASTRITIS [None]
  - HEADACHE [None]
  - HISTOPLASMOSIS DISSEMINATED [None]
  - LIPOGRANULOMA [None]
